FAERS Safety Report 6694175-1 (Version None)
Quarter: 2010Q2

REPORT INFORMATION
  Report Type: 
  Country: None (occurrence: None)
  Receive Date: 20100423
  Receipt Date: 20100421
  Transmission Date: 20101027
  Serious: Yes (Hospitalization, Other)
  Sender: FDA-Public Use
  Company Number: DK-ROCHE-680760

PATIENT
  Sex: Female
  Weight: 71 kg

DRUGS (2)
  1. HERCEPTIN [Suspect]
     Indication: BREAST CANCER
     Route: 042
     Dates: start: 20090225, end: 20100105
  2. TAXOTERE [Concomitant]
     Indication: BREAST CANCER
     Route: 042
     Dates: start: 20090224, end: 20090609

REACTIONS (8)
  - ABDOMINAL PAIN [None]
  - COLITIS [None]
  - DIARRHOEA [None]
  - DYSPEPSIA [None]
  - GASTRITIS [None]
  - NAUSEA [None]
  - PYREXIA [None]
  - VOMITING [None]
